FAERS Safety Report 14870051 (Version 1)
Quarter: 2018Q2

REPORT INFORMATION
  Report Type: Report from Study
  Country: ES (occurrence: ES)
  Receive Date: 20180509
  Receipt Date: 20180509
  Transmission Date: 20180711
  Serious: Yes (Death, Life-Threatening)
  Sender: FDA-Public Use
  Company Number: ES-PFIZER INC-2018187487

PATIENT
  Age: 66 Year
  Sex: Male

DRUGS (2)
  1. CITARABINA [Suspect]
     Active Substance: CYTARABINE
     Indication: ACUTE MYELOID LEUKAEMIA
     Dosage: 466 MG, EVEY 21 DAYS
     Route: 042
     Dates: start: 20170710, end: 20170819
  2. IDARUBICIN HCL [Suspect]
     Active Substance: IDARUBICIN HYDROCHLORIDE
     Indication: ACUTE MYELOID LEUKAEMIA
     Dosage: 27.96 MG EVERY 21 DAYS
     Route: 042
     Dates: start: 20170710, end: 20170815

REACTIONS (1)
  - Acute kidney injury [Not Recovered/Not Resolved]

NARRATIVE: CASE EVENT DATE: 20170817
